FAERS Safety Report 9084952 (Version 1)
Quarter: 2013Q1

REPORT INFORMATION
  Report Type: Spontaneous
  Country: US (occurrence: US)
  Receive Date: 20130201
  Receipt Date: 20130201
  Transmission Date: 20140127
  Serious: Yes (Other)
  Sender: FDA-Public Use
  Company Number: PHEH2012US023801

PATIENT
  Sex: Female

DRUGS (7)
  1. GILENYA [Suspect]
     Indication: MULTIPLE SCLEROSIS
     Dosage: 0.5 MG, UNK
     Route: 048
     Dates: start: 20120327, end: 20121108
  2. ARMOUR THYROID [Concomitant]
     Indication: HYPOTHYROIDISM
     Dosage: 60 MG, 1 AND 1/2 TABLET
     Route: 048
  3. ZYRTEC [Concomitant]
     Indication: SEASONAL ALLERGY
     Dosage: 10 MG, UNK
     Route: 048
  4. FLONASE [Concomitant]
     Indication: SEASONAL ALLERGY
     Route: 045
  5. VITAMIN D [Concomitant]
     Route: 048
  6. DIFLUCAN [Concomitant]
     Indication: FUNGAL INFECTION
     Dosage: 150 MG, UNK
     Route: 048
  7. ACIDOPHILUS [Concomitant]

REACTIONS (9)
  - Convulsion [Recovered/Resolved]
  - Electroencephalogram abnormal [Unknown]
  - Aphasia [Recovered/Resolved]
  - Dizziness [Recovered/Resolved]
  - Aura [Unknown]
  - Sensory disturbance [Unknown]
  - Cognitive disorder [Unknown]
  - Confusional state [Unknown]
  - Lethargy [Unknown]
